FAERS Safety Report 9631276 (Version 1)
Quarter: 2013Q4

REPORT INFORMATION
  Report Type: Spontaneous
  Country: US (occurrence: None)
  Receive Date: 20131017
  Receipt Date: 20131017
  Transmission Date: 20140711
  Serious: No
  Sender: FDA-Public Use
  Company Number: None

PATIENT
  Age: 56 Year
  Sex: Male
  Weight: 78.02 kg

DRUGS (25)
  1. LOPRESSOR [Suspect]
  2. ZETIA [Concomitant]
  3. TUMS [Concomitant]
  4. PLAVIX [Concomitant]
  5. AGGRNOX [Concomitant]
  6. ASA [Concomitant]
  7. NIACIN [Concomitant]
  8. NIASPAN [Concomitant]
  9. CERTIRIZINE [Concomitant]
  10. CO Q 10 [Concomitant]
  11. PROTONIX [Concomitant]
  12. VENTOLIN [Concomitant]
  13. LISINOPRIL [Concomitant]
  14. ZANTACC [Concomitant]
  15. ALDACTONE [Concomitant]
  16. DIGOXIN [Concomitant]
  17. ADVAIR [Concomitant]
  18. NITROGLYCERIN [Concomitant]
  19. ALBUTEROL [Concomitant]
  20. IMDUR [Concomitant]
  21. TRICOR [Concomitant]
  22. PRILOSEC [Concomitant]
  23. KLONIPIN [Concomitant]
  24. MULTIVITS [Concomitant]
  25. PROAIR [Concomitant]

REACTIONS (6)
  - Product substitution issue [None]
  - Urticaria [None]
  - Rash [None]
  - Arthralgia [None]
  - Malaise [None]
  - Product substitution issue [None]
